FAERS Safety Report 6369336-1 (Version None)
Quarter: 2009Q3

REPORT INFORMATION
  Report Type: 
  Country: None (occurrence: None)
  Receive Date: 20090916
  Receipt Date: 20090914
  Transmission Date: 20100115
  Serious: Yes (Other)
  Sender: FDA-Public Use
  Company Number: GXKR2009DE10154

PATIENT
  Age: 35 Year
  Sex: Female

DRUGS (2)
  1. SIMATRIPTAN (NGX) (SUMATRIPTAN) UNKNOWN [Suspect]
     Dosage: 100 MG/DAILY;
  2. DICLOFENAC SODIUM [Concomitant]

REACTIONS (2)
  - COLITIS ISCHAEMIC [None]
  - COLITIS ULCERATIVE [None]
